FAERS Safety Report 7790107-3 (Version None)
Quarter: 2011Q3

REPORT INFORMATION
  Report Type: 
  Country: None (occurrence: None)
  Receive Date: 20110930
  Receipt Date: 20100805
  Transmission Date: 20111222
  Serious: No
  Sender: FDA-Public Use
  Company Number: US-ASTRAZENECA-2010SE36934

PATIENT
  Sex: Female
  Weight: 45.4 kg

DRUGS (1)
  1. ARIMIDEX [Suspect]
     Indication: BREAST CANCER
     Route: 048
     Dates: start: 20090705

REACTIONS (3)
  - ATROPHIC VULVOVAGINITIS [None]
  - HAEMORRHAGE URINARY TRACT [None]
  - URINARY TRACT INFECTION [None]
